FAERS Safety Report 6652177-5 (Version None)
Quarter: 2010Q1

REPORT INFORMATION
  Report Type: 
  Country: None (occurrence: None)
  Receive Date: 20100325
  Receipt Date: 20091005
  Transmission Date: 20100710
  Serious: Yes (Hospitalization)
  Sender: FDA-Public Use
  Company Number: GB-SANOFI-AVENTIS-F01200900904

PATIENT
  Age: 61 Year
  Sex: Male
  Weight: 103.2 kg

DRUGS (6)
  1. OXALIPLATIN [Suspect]
     Dosage: UNIT DOSE: 85 MG/M2
     Route: 041
     Dates: start: 20090820, end: 20090820
  2. AFLIBERCEPT [Suspect]
     Dosage: UNIT DOSE: 4 MG/KG
     Route: 042
     Dates: start: 20090820, end: 20090820
  3. FLUOROURACIL [Suspect]
     Dosage: UNIT DOSE: 2800 MG/M2
     Route: 042
     Dates: start: 20090820, end: 20090820
  4. LEUCOVORIN CALCIUM [Suspect]
     Dosage: UNIT DOSE: 175 MG/M2
     Route: 041
     Dates: start: 20090820, end: 20090820
  5. ACETAMINOPHEN [Concomitant]
     Route: 065
  6. TRAMADOL [Concomitant]

REACTIONS (1)
  - FOLLICULITIS [None]
